FAERS Safety Report 18561145 (Version 2)
Quarter: 2021Q2

REPORT INFORMATION
  Report Type: Report from Study
  Country: CA (occurrence: CA)
  Receive Date: 20201130
  Receipt Date: 20210609
  Transmission Date: 20210717
  Serious: Yes (Life-Threatening, Hospitalization, Other)
  Sender: FDA-Public Use
  Company Number: CA-INDIVIOR US-INDV-124025-2020

PATIENT

DRUGS (8)
  1. SUBUTEX [Suspect]
     Active Substance: BUPRENORPHINE HYDROCHLORIDE
     Indication: DRUG DEPENDENCE
     Dosage: 8 MILLIGRAM (3 TABLETS ONCE DAILY)
     Route: 060
     Dates: start: 20200408, end: 20201102
  2. SUBOXONE [Suspect]
     Active Substance: BUPRENORPHINE HYDROCHLORIDE\NALOXONE HYDROCHLORIDE
     Dosage: 8 MILLIGRAM (3 TABLETS ONCE DAILY)
     Route: 048
     Dates: start: 20201102
  3. SUBOXONE [Suspect]
     Active Substance: BUPRENORPHINE HYDROCHLORIDE\NALOXONE HYDROCHLORIDE
     Indication: DRUG DEPENDENCE
     Dosage: 2 MILLIGRAM (2 TABLETS ONCE DAILY)
     Route: 060
     Dates: start: 20201102
  4. NICOTINE. [Concomitant]
     Active Substance: NICOTINE
     Indication: PRODUCT USED FOR UNKNOWN INDICATION
     Dosage: UNK
     Route: 055
  5. FOLIC ACID. [Concomitant]
     Active Substance: FOLIC ACID
     Indication: PROPHYLAXIS OF NEURAL TUBE DEFECT
     Dosage: 1 MILLIGRAM, QD
     Route: 065
     Dates: start: 202001, end: 202011
  6. MATERNA                            /02266601/ [Concomitant]
     Active Substance: MINERALS\VITAMINS
     Indication: PROPHYLAXIS
     Dosage: UNK, QD
     Route: 065
     Dates: start: 202001
  7. SUBUTEX [Suspect]
     Active Substance: BUPRENORPHINE HYDROCHLORIDE
     Indication: DRUG DEPENDENCE
     Dosage: 2 MILLIGRAM ( 2 TABLETS ONCE DAILY)
     Route: 060
     Dates: start: 20200408, end: 20201102
  8. SUBOXONE [Suspect]
     Active Substance: BUPRENORPHINE HYDROCHLORIDE\NALOXONE HYDROCHLORIDE
     Indication: DRUG DEPENDENCE
     Dosage: 8 MILLIGRAM (3 TABLETS ONCE DAILY)
     Route: 060
     Dates: start: 2014, end: 20200407

REACTIONS (4)
  - Maternal exposure during pregnancy [Recovered/Resolved]
  - Bradycardia foetal [Recovered/Resolved]
  - Placenta praevia [Recovered/Resolved]
  - Prescribed overdose [Not Recovered/Not Resolved]

NARRATIVE: CASE EVENT DATE: 2020
